FAERS Safety Report 8172770-0 (Version None)
Quarter: 2012Q1

REPORT INFORMATION
  Report Type: 
  Country: None (occurrence: None)
  Receive Date: 20120223
  Receipt Date: 20120210
  Transmission Date: 20120608
  Serious: Yes (Death, Hospitalization)
  Sender: FDA-Public Use
  Company Number: 2011MA008792

PATIENT
  Age: 62 Year
  Sex: Male

DRUGS (9)
  1. INSULIN MIXTARD [Concomitant]
  2. HUMALOG [Concomitant]
  3. EYE DROPS [Concomitant]
  4. IRINOTECAN HYDROCHLORIDE [Suspect]
     Indication: COLORECTAL CANCER METASTATIC
     Dosage: 330 MG;IV
     Route: 042
     Dates: start: 20110426, end: 20110607
  5. FLUOROURACIL [Suspect]
     Indication: COLORECTAL CANCER METASTATIC
     Dosage: 750 MG;IV
     Route: 042
     Dates: start: 20110426, end: 20110607
  6. LISINOPRIL [Concomitant]
  7. SIMVASTATIN [Concomitant]
  8. LANSOPRAZOLE [Concomitant]
  9. FERROUS SULFATE TAB [Concomitant]

REACTIONS (2)
  - URINARY RETENTION [None]
  - CONSTIPATION [None]
